FAERS Safety Report 8738540 (Version 2)
Quarter: 2012Q4

REPORT INFORMATION
  Report Type: 
  Country: EC (occurrence: EC)
  Receive Date: 20120823
  Receipt Date: 20120912
  Transmission Date: 20130627
  Serious: Yes (Hospitalization)
  Sender: FDA-Public Use
  Company Number: PHHY2012EC072385

PATIENT
  Age: 73 Year
  Sex: Female

DRUGS (3)
  1. ACLASTA [Suspect]
     Indication: OSTEOPOROSIS
     Dosage: 5mg/100ml
     Route: 042
     Dates: start: 200804
  2. ANALGAN [Concomitant]
     Dosage: UNK UKN, UNK
     Dates: start: 201201
  3. VOLTAREN [Concomitant]
     Dosage: UNK UKN, UNK
     Dates: start: 201201

REACTIONS (1)
  - Retinal detachment [Recovered/Resolved]
